FAERS Safety Report 8435058-6 (Version None)
Quarter: 2012Q2

REPORT INFORMATION
  Report Type: 
  Country: None (occurrence: None)
  Receive Date: 20120614
  Receipt Date: 20120531
  Transmission Date: 20120825
  Serious: Yes (Hospitalization)
  Sender: FDA-Public Use
  Company Number: DE-MYLANLABS-2012S1011075

PATIENT
  Age: 52 Year
  Sex: Female
  Weight: 55 kg

DRUGS (2)
  1. FLUPIRTINE MALEATE [Suspect]
     Indication: BACK PAIN
     Route: 048
     Dates: start: 20110701, end: 20111020
  2. IBUPROFEN [Suspect]
     Indication: BACK PAIN
     Dosage: BEI BEDARF DOSE UNIT:1800 UNKNOWN
     Route: 048
     Dates: start: 20110701, end: 20111020

REACTIONS (3)
  - HEPATIC CIRRHOSIS [None]
  - HEPATIC NECROSIS [None]
  - CHOLESTASIS [None]
